FAERS Safety Report 6416707-0 (Version None)
Quarter: 2009Q4

REPORT INFORMATION
  Report Type: 
  Country: None (occurrence: None)
  Receive Date: 20091027
  Receipt Date: 20091015
  Transmission Date: 20100525
  Serious: Yes (Hospitalization)
  Sender: FDA-Public Use
  Company Number: PL-ELI_LILLY_AND_COMPANY-PL200910005473

PATIENT
  Age: 77 Year
  Sex: Female

DRUGS (4)
  1. OLANZAPINE [Suspect]
     Dosage: 10 MG, DAILY (1/D)
     Route: 048
     Dates: start: 20070301
  2. PROMAZINE HYDROCHLORIDE [Concomitant]
     Dosage: 700 MG, DAILY (1/D)
  3. CLORAZEPATE DIPOTASSIUM [Concomitant]
     Dosage: 40 MG, DAILY (1/D)
     Route: 048
  4. AMOXICILLIN [Concomitant]

REACTIONS (2)
  - AGRANULOCYTOSIS [None]
  - ENTEROCOCCAL INFECTION [None]
